FAERS Safety Report 20340159 (Version 2)
Quarter: 2022Q1

REPORT INFORMATION
  Report Type: Spontaneous
  Country: US (occurrence: US)
  Receive Date: 20220117
  Receipt Date: 20220201
  Transmission Date: 20220423
  Serious: Yes (Life-Threatening)
  Sender: FDA-Public Use
  Company Number: US-BEH-2022140417

PATIENT
  Sex: Male

DRUGS (1)
  1. PRIVIGEN [Suspect]
     Active Substance: HUMAN IMMUNOGLOBULIN G
     Dosage: UNK
     Route: 042
     Dates: start: 2021

REACTIONS (8)
  - Drug hypersensitivity [Unknown]
  - Catheter site rash [Unknown]
  - Erythema [Unknown]
  - Pruritus [Unknown]
  - Dyspepsia [Unknown]
  - Catheter site erythema [Unknown]
  - Urticaria [Unknown]
  - Heart rate variability increased [Unknown]

NARRATIVE: CASE EVENT DATE: 20210101
